FAERS Safety Report 24049692 (Version 1)
Quarter: 2024Q3

REPORT INFORMATION
  Report Type: Spontaneous
  Country: US (occurrence: US)
  Receive Date: 20240704
  Receipt Date: 20240704
  Transmission Date: 20241017
  Serious: Yes (Hospitalization, Other)
  Sender: RANBAXY
  Company Number: US-SUN PHARMACEUTICAL INDUSTRIES LTD-2024R1-454208

PATIENT
  Age: 55 Year
  Sex: Female

DRUGS (1)
  1. BACTRIM [Suspect]
     Active Substance: SULFAMETHOXAZOLE\TRIMETHOPRIM
     Indication: Antifungal prophylaxis
     Dosage: UNK
     Route: 065

REACTIONS (5)
  - Disease recurrence [Unknown]
  - Pulmonary alveolar haemorrhage [Unknown]
  - Shock haemorrhagic [Unknown]
  - Disseminated intravascular coagulation [Unknown]
  - Septic shock [Unknown]
